APPROVED DRUG PRODUCT: PHENTERMINE HYDROCHLORIDE
Active Ingredient: PHENTERMINE HYDROCHLORIDE
Strength: 18.75MG
Dosage Form/Route: CAPSULE;ORAL
Application: A088576 | Product #001
Applicant: CHARTWELL RX SCIENCES LLC
Approved: May 23, 1984 | RLD: No | RS: No | Type: DISCN